FAERS Safety Report 15228130 (Version 1)
Quarter: 2018Q3

REPORT INFORMATION
  Report Type: Spontaneous
  Country: DE (occurrence: DE)
  Receive Date: 20180801
  Receipt Date: 20180801
  Transmission Date: 20181010
  Serious: Yes (Death)
  Sender: FDA-Public Use
  Company Number: PHHY2018DE057768

PATIENT
  Age: 73 Year
  Sex: Female

DRUGS (4)
  1. ETOPOSIDE. [Suspect]
     Active Substance: ETOPOSIDE
     Indication: ACUTE MYELOID LEUKAEMIA
     Dosage: 500 MG/M2, CYCLIC (SINGLE CYCLE OF INDUCTION THERAPY)
     Route: 065
  2. PREDNISONE. [Suspect]
     Active Substance: PREDNISONE
     Indication: ACUTE MYELOID LEUKAEMIA
     Dosage: 90 MG/M2, CYCLIC (SINGLE CYCLE OF INDUCTION THERAPY)
     Route: 065
  3. CYTARABINE. [Suspect]
     Active Substance: CYTARABINE
     Indication: ACUTE MYELOID LEUKAEMIA
     Dosage: 1400 MG/M2, CYCLIC (SINGLE CYCLE OF INDUCTION THERAPY)
     Route: 065
  4. DAUNORUBICIN HYDROCHLORIDE. [Suspect]
     Active Substance: DAUNORUBICIN HYDROCHLORIDE
     Indication: ACUTE MYELOID LEUKAEMIA
     Dosage: 135 MG/M2, CYCLIC
     Route: 065

REACTIONS (3)
  - Stenotrophomonas infection [Fatal]
  - Pulmonary haemorrhage [Fatal]
  - Pneumonia [Fatal]
